FAERS Safety Report 5802424-4 (Version None)
Quarter: 2008Q3

REPORT INFORMATION
  Report Type: 
  Country: None (occurrence: None)
  Receive Date: 20080707
  Receipt Date: 20080627
  Transmission Date: 20090109
  Serious: Yes (Hospitalization, Other)
  Sender: FDA-Public Use
  Company Number: CA-ABBOTT-07P-028-0359359-00

PATIENT
  Sex: Male
  Weight: 78 kg

DRUGS (7)
  1. MAVIK [Suspect]
     Indication: HYPERTENSION
     Route: 048
     Dates: start: 20061117
  2. HYDROCHLOROTHIAZIDE [Concomitant]
     Indication: HYPERTENSION
     Route: 048
     Dates: start: 20060711
  3. PANTOPRAZOLE SODIUM [Concomitant]
     Indication: GASTROOESOPHAGEAL REFLUX DISEASE
     Route: 048
     Dates: start: 20070129
  4. IRON [Concomitant]
     Indication: MINERAL SUPPLEMENTATION
     Route: 048
  5. ACETYLSALICYLIC ACID SRT [Concomitant]
     Indication: TRANSIENT ISCHAEMIC ATTACK
     Dosage: DAILY
     Dates: start: 20030101
  6. MIDAZOLAM HYDROCHLORIDE [Concomitant]
     Indication: DRUG USE FOR UNKNOWN INDICATION
     Route: 042
     Dates: start: 20070216
  7. FENTANYL [Concomitant]
     Indication: DRUG USE FOR UNKNOWN INDICATION
     Route: 042
     Dates: start: 20070216

REACTIONS (16)
  - ABDOMINAL PAIN [None]
  - ABDOMINAL PAIN UPPER [None]
  - BLOOD PRESSURE DECREASED [None]
  - DIVERTICULUM INTESTINAL HAEMORRHAGIC [None]
  - DIZZINESS [None]
  - DYSPEPSIA [None]
  - EPISTAXIS [None]
  - FLATULENCE [None]
  - GASTROINTESTINAL HAEMORRHAGE [None]
  - HAEMOGLOBIN DECREASED [None]
  - MALAISE [None]
  - MELAENA [None]
  - PAIN [None]
  - PALLOR [None]
  - SYNCOPE [None]
  - THROMBOSIS [None]
